FAERS Safety Report 4973814-7 (Version None)
Quarter: 2006Q2

REPORT INFORMATION
  Report Type: 
  Country: None (occurrence: None)
  Receive Date: 20060414
  Receipt Date: 20060403
  Transmission Date: 20061013
  Serious: Yes (Hospitalization)
  Sender: FDA-Public Use
  Company Number: US-MERCK-0604USA00507

PATIENT
  Age: 73 Year
  Sex: Female
  Weight: 76 kg

DRUGS (9)
  1. VIOXX [Suspect]
     Indication: ARTHRITIS
     Route: 048
     Dates: start: 19990101, end: 20041001
  2. PAXIL [Concomitant]
     Route: 065
  3. SINGULAIR [Concomitant]
     Route: 048
  4. MICARDIS [Concomitant]
     Route: 048
  5. ZYRTEC [Concomitant]
     Route: 048
  6. HYDROCHLOROTHIAZIDE [Concomitant]
     Route: 065
  7. CELEBREX [Concomitant]
     Route: 065
  8. PREMARIN [Concomitant]
     Indication: HORMONE LEVEL ABNORMAL
     Route: 048
  9. ATIVAN [Concomitant]
     Route: 065

REACTIONS (11)
  - ARTHROPATHY [None]
  - BRAIN STEM INFARCTION [None]
  - CARDIAC VALVE DISEASE [None]
  - CHRONIC OBSTRUCTIVE PULMONARY DISEASE [None]
  - DIPLOPIA [None]
  - EYE DISORDER [None]
  - HYPERTENSION [None]
  - NASAL SEPTUM DEVIATION [None]
  - REVERSIBLE ISCHAEMIC NEUROLOGICAL DEFICIT [None]
  - URETHRAL DISORDER [None]
  - VERTEBROBASILAR INSUFFICIENCY [None]
